FAERS Safety Report 7470589-7 (Version None)
Quarter: 2011Q2

REPORT INFORMATION
  Report Type: 
  Country: None (occurrence: None)
  Receive Date: 20110429
  Receipt Date: 20110414
  Transmission Date: 20111010
  Serious: Yes (Hospitalization)
  Sender: FDA-Public Use
  Company Number: 031200

PATIENT
  Sex: Female
  Weight: 71.5 kg

DRUGS (4)
  1. CIMZIA [Suspect]
     Indication: CROHN'S DISEASE
     Dosage: 400 MG 1X2 WEEKS, NBR OF DOSES 03, AT 0, 2 AND 4 WEEKS, (400 MG 1X4 WEEKS, SUBCUTANEOUS
     Route: 058
     Dates: start: 20080401
  2. CIMZIA [Suspect]
     Indication: CROHN'S DISEASE
     Dosage: 400 MG 1X2 WEEKS, NBR OF DOSES 03, AT 0, 2 AND 4 WEEKS, (400 MG 1X4 WEEKS, SUBCUTANEOUS
     Route: 058
     Dates: start: 20080311, end: 20080401
  3. INFLIXIMAB [Concomitant]
  4. PEGINTERFERON ALFA-2B [Concomitant]

REACTIONS (2)
  - ABSCESS [None]
  - GENITAL ABSCESS [None]
